FAERS Safety Report 10901353 (Version 1)
Quarter: 2015Q1

REPORT INFORMATION
  Report Type: Spontaneous
  Country: US (occurrence: None)
  Receive Date: 20150303
  Receipt Date: 20150303
  Transmission Date: 20150721
  Serious: Yes (Other)
  Sender: FDA-Public Use
  Company Number: 201502131

PATIENT
  Age: 67 Year
  Sex: Male

DRUGS (3)
  1. ANDROGEL [Suspect]
     Active Substance: TESTOSTERONE
     Indication: BLOOD TESTOSTERONE DECREASED
  2. ANDRODERM [Suspect]
     Active Substance: TESTOSTERONE
     Indication: BLOOD TESTOSTERONE DECREASED
  3. TESTIM [Suspect]
     Active Substance: TESTOSTERONE
     Indication: BLOOD TESTOSTERONE DECREASED
     Route: 062

REACTIONS (8)
  - Myocardial infarction [None]
  - Emotional disorder [None]
  - Activities of daily living impaired [None]
  - Pain [None]
  - Anxiety [None]
  - Impaired work ability [None]
  - Economic problem [None]
  - General physical condition abnormal [None]

NARRATIVE: CASE EVENT DATE: 20130305
